FAERS Safety Report 18659655 (Version 1)
Quarter: 2020Q4

REPORT INFORMATION
  Report Type: Spontaneous
  Country: US (occurrence: US)
  Receive Date: 20201223
  Receipt Date: 20201223
  Transmission Date: 20210114
  Serious: Yes (Other)
  Sender: FDA-Public Use
  Company Number: US-PURDUE-USA-2020-0186619

PATIENT
  Sex: Male

DRUGS (5)
  1. HYDROCODONE BITARTRATE (SIMILAR TO NDA 206627) [Suspect]
     Active Substance: HYDROCODONE BITARTRATE
     Indication: PAIN
     Dosage: UNKNOWN
     Route: 048
     Dates: start: 201408, end: 201709
  2. NORCO [Suspect]
     Active Substance: ACETAMINOPHEN\HYDROCODONE BITARTRATE
     Indication: PAIN
     Dosage: UNKNOWN
     Route: 065
     Dates: start: 201408, end: 201709
  3. SOMA [Concomitant]
     Active Substance: CARISOPRODOL
     Indication: FEELING OF RELAXATION
  4. VENLAFAXINE [Concomitant]
     Active Substance: VENLAFAXINE HYDROCHLORIDE
     Indication: DEPRESSION
     Dosage: 225 MG, UNK
     Dates: start: 2011
  5. SOMA [Concomitant]
     Active Substance: CARISOPRODOL
     Indication: SLEEP DISORDER

REACTIONS (3)
  - Weight increased [Not Recovered/Not Resolved]
  - Erectile dysfunction [Not Recovered/Not Resolved]
  - Drug dependence [Not Recovered/Not Resolved]
